FAERS Safety Report 4524871-3 (Version None)
Quarter: 2004Q4

REPORT INFORMATION
  Report Type: 
  Country: None (occurrence: None)
  Receive Date: 20041213
  Receipt Date: 20020418
  Transmission Date: 20050328
  Serious: Yes (Hospitalization, Other)
  Sender: FDA-Public Use
  Company Number: US-BRISTOL-MYERS SQUIBB COMPANY-11832466

PATIENT
  Age: 35 Year
  Sex: Female

DRUGS (8)
  1. STADOL [Suspect]
     Indication: MIGRAINE
     Route: 045
     Dates: start: 19970127, end: 19980101
  2. STADOL [Suspect]
     Indication: MIGRAINE
     Dates: start: 19970101, end: 19970101
  3. ALPRAZOLAM [Concomitant]
  4. NEURONTIN [Concomitant]
  5. LITHIUM CARBONATE [Concomitant]
  6. HYDROXYZINE [Concomitant]
  7. DIAZEPAM [Concomitant]
  8. CHLORPROMAZINE [Concomitant]

REACTIONS (3)
  - DEPENDENCE [None]
  - DRUG DEPENDENCE [None]
  - SUICIDAL IDEATION [None]
